FAERS Safety Report 9200179 (Version 1)
Quarter: 2013Q1

REPORT INFORMATION
  Report Type: Spontaneous
  Country: US (occurrence: US)
  Receive Date: 20130329
  Receipt Date: 20130329
  Transmission Date: 20140127
  Serious: Yes (Other)
  Sender: FDA-Public Use
  Company Number: US-JNJFOC-20130312249

PATIENT
  Age: 76 Year
  Sex: Male
  Weight: 117.94 kg

DRUGS (12)
  1. XARELTO [Suspect]
     Indication: CEREBROVASCULAR ACCIDENT PROPHYLAXIS
     Route: 048
     Dates: start: 20130225
  2. XARELTO [Suspect]
     Indication: ATRIAL FIBRILLATION
     Route: 048
     Dates: start: 20130225
  3. GABAPENTIN [Suspect]
     Indication: PRODUCT USED FOR UNKNOWN INDICATION
     Route: 065
     Dates: start: 20130310, end: 20130313
  4. INSPRA [Concomitant]
     Indication: CARDIAC DISORDER
     Route: 048
  5. LIPITOR [Concomitant]
     Indication: CARDIAC DISORDER
     Route: 048
     Dates: start: 2012
  6. ASPIRIN [Concomitant]
     Indication: CARDIAC DISORDER
     Route: 048
  7. RANEXA [Concomitant]
     Indication: CARDIAC DISORDER
     Route: 048
     Dates: start: 2009
  8. COREG [Concomitant]
     Indication: CARDIAC DISORDER
     Route: 048
  9. LASIX [Concomitant]
     Indication: JOINT SWELLING
     Dosage: USUALLY TWICE WEEKLY
     Route: 048
  10. LASIX [Concomitant]
     Indication: CARDIAC DISORDER
     Dosage: USUALLY TWICE WEEKLY
     Route: 048
  11. NIASPAN [Concomitant]
     Indication: CARDIAC DISORDER
     Route: 048
  12. PLAVIX [Concomitant]
     Indication: CARDIAC DISORDER
     Route: 048

REACTIONS (4)
  - Local swelling [Not Recovered/Not Resolved]
  - Pain in extremity [Not Recovered/Not Resolved]
  - Abnormal dreams [Recovered/Resolved]
  - Sleep talking [Recovered/Resolved]
